FAERS Safety Report 8247537-5 (Version None)
Quarter: 2012Q1

REPORT INFORMATION
  Report Type: 
  Country: None (occurrence: None)
  Receive Date: 20120330
  Receipt Date: 20120327
  Transmission Date: 20120608
  Serious: Yes (Other)
  Sender: FDA-Public Use
  Company Number: CN-BAYER-2012-029904

PATIENT
  Age: 55 Year
  Sex: Male

DRUGS (4)
  1. ULTRAVIST 370 [Suspect]
     Indication: COMPUTERISED TOMOGRAM
  2. MANNITOL [Concomitant]
     Dosage: 100 ML, ONCE, JUST BEFORE CT SCAN
     Route: 048
  3. ULTRAVIST 370 [Suspect]
     Indication: ABDOMINAL PAIN UPPER
     Dosage: 90 ML, ONCE, AT A RATE OF 3 ML/S
     Route: 042
  4. MANNITOL [Concomitant]
     Indication: COMPUTERISED TOMOGRAM
     Dosage: 400 ML, ONCE, 30 MIN BEFORE CT SCAN
     Route: 048

REACTIONS (3)
  - DIARRHOEA [None]
  - SMALL BOWEL ANGIOEDEMA [None]
  - ABDOMINAL DISCOMFORT [None]
